FAERS Safety Report 5135525-7 (Version None)
Quarter: 2006Q4

REPORT INFORMATION
  Report Type: 
  Country: None (occurrence: None)
  Receive Date: 20061026
  Receipt Date: 20060518
  Transmission Date: 20070319
  Serious: Yes (Hospitalization, Other)
  Sender: FDA-Public Use
  Company Number: US-ELI_LILLY_AND_COMPANY-US200605004867

PATIENT
  Sex: Male
  Weight: 184 kg

DRUGS (2)
  1. ZYPREXA [Suspect]
     Indication: POST-TRAUMATIC STRESS DISORDER
     Dosage: 5 MG, UNKNOWN
     Dates: start: 20000501, end: 20041001
  2. ZYPREXA [Suspect]
     Dosage: 10 MG, UNK

REACTIONS (8)
  - CHEST PAIN [None]
  - DIABETES MELLITUS [None]
  - GLYCOSURIA [None]
  - HEPATIC CIRRHOSIS [None]
  - HEPATOCELLULAR DAMAGE [None]
  - HYPERGLYCAEMIA [None]
  - PORTAL HYPERTENSION [None]
  - TREMOR [None]
